FAERS Safety Report 20946983 (Version 2)
Quarter: 2022Q3

REPORT INFORMATION
  Report Type: Spontaneous
  Country: US (occurrence: US)
  Receive Date: 20220610
  Receipt Date: 20220817
  Transmission Date: 20221027
  Serious: No
  Sender: FDA-Public Use
  Company Number: US-MYLANLABS-2022M1042394

PATIENT
  Age: 81 Year
  Sex: Male
  Weight: 66.22 kg

DRUGS (1)
  1. CYCLOSPORINE [Suspect]
     Active Substance: CYCLOSPORINE
     Indication: Dry eye
     Dosage: 1 DROP, BID
     Route: 047
     Dates: start: 20220530, end: 20220531

REACTIONS (2)
  - Administration site erythema [Unknown]
  - Administration site pain [Unknown]

NARRATIVE: CASE EVENT DATE: 20220531
